FAERS Safety Report 10191652 (Version 1)
Quarter: 2014Q2

REPORT INFORMATION
  Report Type: Spontaneous
  Country: BR (occurrence: None)
  Receive Date: 20140521
  Receipt Date: 20140521
  Transmission Date: 20141212
  Serious: Yes (Hospitalization)
  Sender: FDA-Public Use
  Company Number: AUR-APL-2014-05909

PATIENT
  Age: 69 Year
  Sex: Female
  Weight: 49 kg

DRUGS (5)
  1. ATENOLOL [Suspect]
     Indication: HYPERTENSION
     Dosage: 50 MG
     Route: 048
     Dates: start: 201312
  2. ENALAPRIL [Suspect]
     Indication: HYPERTENSION
     Route: 048
     Dates: start: 201312
  3. ROSUVASTATIN [Suspect]
     Indication: BLOOD CHOLESTEROL INCREASED
     Route: 048
     Dates: end: 201402
  4. BRILINTA [Suspect]
     Indication: PROPHYLAXIS
     Dosage: 180 MG
     Route: 048
     Dates: start: 201304, end: 201402
  5. AMLODIPINE (AMLODIPINE) [Concomitant]

REACTIONS (9)
  - Coronary artery occlusion [None]
  - Blood pressure increased [None]
  - Carotid artery occlusion [None]
  - Fatigue [None]
  - Blood test abnormal [None]
  - Ulcer haemorrhage [None]
  - Off label use [None]
  - Wrong technique in drug usage process [None]
  - Inappropriate schedule of drug administration [None]
